FAERS Safety Report 6292836-X (Version None)
Quarter: 2009Q3

REPORT INFORMATION
  Report Type: 
  Country: None (occurrence: None)
  Receive Date: 20090731
  Receipt Date: 20090716
  Transmission Date: 20100115
  Serious: Yes (Hospitalization, Other)
  Sender: FDA-Public Use
  Company Number: PHHY2009KR24840

PATIENT
  Age: 14 Year
  Sex: Male

DRUGS (11)
  1. CLOZAPINE [Suspect]
     Dosage: 12.5 MG/DAY
     Dates: start: 20081230
  2. CLOZAPINE [Suspect]
     Dosage: 50 MG DAILY
  3. CLOZAPINE [Suspect]
     Dosage: 200 MG/DAY
     Dates: start: 20090112
  4. ARIPIPRAZOLE [Concomitant]
     Dosage: 5 MG DAILY
     Dates: start: 20080901
  5. ARIPIPRAZOLE [Concomitant]
     Dosage: 30 MG DAILY
     Dates: start: 20081001, end: 20090101
  6. ARIPIPRAZOLE [Concomitant]
     Dosage: UNK
     Dates: start: 20090121
  7. QUETIAPINE FUMARATE [Concomitant]
     Dosage: 25 MG DAILY
     Dates: start: 20080901
  8. QUETIAPINE FUMARATE [Concomitant]
     Dosage: 400 MG DAILY
     Dates: start: 20081001
  9. LAMOTRIGINE [Concomitant]
     Dosage: 10 MG DAILY
  10. VALPROATE SODIUM [Concomitant]
     Dosage: UNK
  11. VALPROATE SODIUM [Concomitant]
     Dosage: 900 MG DAILY

REACTIONS (17)
  - BLOOD CREATINE PHOSPHOKINASE INCREASED [None]
  - BLOOD CREATINE PHOSPHOKINASE MB INCREASED [None]
  - BLOOD LACTATE DEHYDROGENASE INCREASED [None]
  - BURNING SENSATION [None]
  - CARDIOMEGALY [None]
  - CHEST DISCOMFORT [None]
  - CHILLS [None]
  - DYSPNOEA [None]
  - ELECTROCARDIOGRAM ST SEGMENT ELEVATION [None]
  - PERICARDIAL EFFUSION [None]
  - PERICARDITIS [None]
  - PLEURAL EFFUSION [None]
  - PULMONARY CONGESTION [None]
  - PYREXIA [None]
  - TACHYCARDIA [None]
  - TROPONIN INCREASED [None]
  - VENTRICULAR HYPERTROPHY [None]
